FAERS Safety Report 20077872 (Version 1)
Quarter: 2021Q4

REPORT INFORMATION
  Report Type: Spontaneous
  Country: CN (occurrence: None)
  Receive Date: 20211116
  Receipt Date: 20211116
  Transmission Date: 20220303
  Serious: Yes (Other)
  Sender: FDA-Public Use
  Company Number: CN-ROCHE-2958357

PATIENT
  Sex: Female
  Weight: 37.5 kg

DRUGS (2)
  1. XELODA [Suspect]
     Active Substance: CAPECITABINE
     Indication: Small intestine carcinoma
     Route: 048
     Dates: start: 202106, end: 20211101
  2. OXALIPLATIN [Suspect]
     Active Substance: OXALIPLATIN
     Indication: Small intestine carcinoma
     Route: 041
     Dates: start: 202106, end: 20211010

REACTIONS (3)
  - Myelosuppression [Recovering/Resolving]
  - Liver injury [Recovering/Resolving]
  - Off label use [Unknown]
